FAERS Safety Report 6665906-1 (Version None)
Quarter: 2010Q2

REPORT INFORMATION
  Report Type: 
  Country: None (occurrence: None)
  Receive Date: 20100402
  Receipt Date: 20100326
  Transmission Date: 20101027
  Serious: Yes (Life-Threatening, Hospitalization, Other)
  Sender: FDA-Public Use
  Company Number: US-ROCHE-694084

PATIENT
  Sex: Male
  Weight: 92 kg

DRUGS (10)
  1. KLONOPIN [Suspect]
     Indication: DRUG USE FOR UNKNOWN INDICATION
     Dosage: AS NEEDED
     Route: 048
  2. CHANTIX [Suspect]
     Indication: TOBACCO ABUSE
     Dosage: FORM: FILM-COATED TABLET
     Route: 065
     Dates: start: 20090301, end: 20090101
  3. CHANTIX [Suspect]
     Dosage: 0.5 MG OR 1 MG BY MOUTH
     Route: 065
     Dates: start: 20091125
  4. ALCOHOL [Suspect]
     Indication: DRUG USE FOR UNKNOWN INDICATION
     Route: 065
  5. ASPIRIN [Concomitant]
  6. VOLTAREN [Concomitant]
  7. PERCOCET [Concomitant]
     Dosage: DOSE: 5MG/325 MG BY MOUTH AS NEEDED EVERY 6 HOURS
     Route: 048
  8. DYAZIDE [Concomitant]
  9. BENICAR [Concomitant]
  10. ZOCOR [Concomitant]

REACTIONS (5)
  - ATTENTION DEFICIT/HYPERACTIVITY DISORDER [None]
  - INSOMNIA [None]
  - OVERDOSE [None]
  - RESPIRATORY DEPRESSION [None]
  - SUICIDE ATTEMPT [None]
